FAERS Safety Report 16903903 (Version 3)
Quarter: 2020Q1

REPORT INFORMATION
  Report Type: Report from Study
  Country: FR (occurrence: FR)
  Receive Date: 20191010
  Receipt Date: 20200205
  Transmission Date: 20200409
  Serious: Yes (Hospitalization)
  Sender: FDA-Public Use
  Company Number: FR-PFIZER INC-2019434142

PATIENT
  Age: 36 Year
  Sex: Female
  Weight: 47 kg

DRUGS (12)
  1. CETIRIZINE [Concomitant]
     Active Substance: CETIRIZINE HYDROCHLORIDE
     Dosage: UNK
     Dates: start: 20190211, end: 20190220
  2. SODIUM CHLORIDE. [Concomitant]
     Active Substance: SODIUM CHLORIDE
     Dosage: UNK
     Dates: start: 20190210, end: 20190210
  3. PARACETAMOL [Concomitant]
     Active Substance: ACETAMINOPHEN
     Dosage: UNK
     Dates: start: 20190210, end: 20190210
  4. METOCLOPRAMIDE. [Concomitant]
     Active Substance: METOCLOPRAMIDE
     Dosage: UNK
     Dates: start: 20190210, end: 20190210
  5. FLUOROURACILO [Suspect]
     Active Substance: FLUOROURACIL
     Indication: COLORECTAL CANCER METASTATIC
     Dosage: 588 MG, CYCLIC (FORTNIGHTY (EVERY TWO WEEKS))
     Route: 040
     Dates: start: 20181003, end: 20190206
  6. LEUCOVORINA [Suspect]
     Active Substance: LEUCOVORIN CALCIUM
     Indication: COLORECTAL CANCER METASTATIC
     Dosage: 588 MG, CYCLIC (FORTNIGHTY (EVERY TWO WEEKS))
     Route: 042
     Dates: start: 20181003, end: 20190206
  7. BACTRIM [Concomitant]
     Active Substance: SULFAMETHOXAZOLE\TRIMETHOPRIM
  8. IRINOTECAN HCL [Suspect]
     Active Substance: IRINOTECAN HYDROCHLORIDE
     Indication: COLORECTAL CANCER METASTATIC
     Dosage: 264.6 MG, CYCLIC (FORTNIGHTY (EVERY TWO WEEKS))
     Route: 042
     Dates: start: 20181003, end: 20190206
  9. FLUOROURACILO [Suspect]
     Active Substance: FLUOROURACIL
     Dosage: 3528 MG, CYCLIC (FORTNIGHTY (EVERY TWO WEEKS))
     Route: 042
     Dates: start: 20181003, end: 20190206
  10. MORPHINE [Concomitant]
     Active Substance: MORPHINE
     Dosage: UNK
  11. GEMCITABINE. [Concomitant]
     Active Substance: GEMCITABINE
     Dosage: UNK
     Dates: start: 20190210, end: 20190210
  12. ENOXAPARINE SODIQUE [Concomitant]
     Active Substance: ENOXAPARIN SODIUM
     Dosage: UNK
     Dates: start: 20190211, end: 20190217

REACTIONS (2)
  - Sepsis [Recovered/Resolved]
  - Myocarditis [Recovered/Resolved]

NARRATIVE: CASE EVENT DATE: 20190209
